FAERS Safety Report 7207007-X (Version None)
Quarter: 2011Q1

REPORT INFORMATION
  Report Type: 
  Country: None (occurrence: None)
  Receive Date: 20110103
  Receipt Date: 20101220
  Transmission Date: 20110831
  Serious: Yes (Hospitalization)
  Sender: FDA-Public Use
  Company Number: B0504013A

PATIENT
  Sex: Male
  Weight: 70 kg

DRUGS (14)
  1. RENAGEL [Concomitant]
     Route: 048
  2. ITOROL [Concomitant]
     Route: 048
  3. SELOKEN [Concomitant]
     Route: 048
  4. ASPIRIN [Concomitant]
     Route: 048
  5. VALTREX [Suspect]
     Indication: HERPES ZOSTER
     Dosage: 1000MG PER DAY
     Route: 048
     Dates: start: 20080110, end: 20080115
  6. SIGMART [Concomitant]
     Route: 048
  7. LIPITOR [Concomitant]
     Route: 048
  8. ARASENA-A [Concomitant]
     Route: 061
  9. ALOSITOL [Concomitant]
     Route: 048
  10. CALTAN [Concomitant]
     Route: 048
  11. CARDENALIN [Concomitant]
     Route: 048
  12. CONIEL [Concomitant]
     Route: 048
  13. MUCOSTA [Concomitant]
     Route: 048
  14. FUROSEMIDE [Concomitant]
     Route: 048

REACTIONS (6)
  - MOOD ALTERED [None]
  - IRRITABILITY [None]
  - ENCEPHALOPATHY [None]
  - DRUG ADMINISTRATION ERROR [None]
  - NERVOUS SYSTEM DISORDER [None]
  - HALLUCINATION [None]
